FAERS Safety Report 5989400-6 (Version None)
Quarter: 2008Q4

REPORT INFORMATION
  Report Type: 
  Country: None (occurrence: None)
  Receive Date: 20081210
  Receipt Date: 20081203
  Transmission Date: 20090506
  Serious: Yes (Other)
  Sender: FDA-Public Use
  Company Number: CA-JNJCH-2008022472

PATIENT
  Age: 42 Year
  Sex: Female

DRUGS (1)
  1. BENYLIN 1 ALL-IN-ONE COLD AND FLU DAY [Suspect]
     Indication: NASOPHARYNGITIS
     Dosage: TEXT:2 DAY CAPLETS
     Route: 048
     Dates: start: 20080819, end: 20080819

REACTIONS (7)
  - AGEUSIA [None]
  - ANOSMIA [None]
  - DEPRESSION [None]
  - FATIGUE [None]
  - HEADACHE [None]
  - INSOMNIA [None]
  - WEIGHT DECREASED [None]
